FAERS Safety Report 16969627 (Version 1)
Quarter: 2019Q4

REPORT INFORMATION
  Report Type: Spontaneous
  Country: CA (occurrence: CA)
  Receive Date: 20191029
  Receipt Date: 20191029
  Transmission Date: 20200122
  Serious: Yes (Death, Other)
  Sender: FDA-Public Use
  Company Number: CA-PFIZER INC-2019462889

PATIENT
  Age: 23 Year
  Sex: Male

DRUGS (8)
  1. FLUOXETINE [Concomitant]
     Active Substance: FLUOXETINE HYDROCHLORIDE
     Dosage: UNK
  2. SERTRALINE HCL [Interacting]
     Active Substance: SERTRALINE HYDROCHLORIDE
     Dosage: UNK
     Route: 065
  3. MANERIX [Interacting]
     Active Substance: MOCLOBEMIDE
     Dosage: UNK
     Route: 048
  4. NORDAZEPAM [Concomitant]
     Active Substance: NORDAZEPAM
     Dosage: UNK
  5. PHENIRAMINE [Concomitant]
     Active Substance: PHENIRAMINE
     Dosage: UNK
  6. DEXTROMETHORPHAN HYDROBROMIDE. [Suspect]
     Active Substance: DEXTROMETHORPHAN HYDROBROMIDE
     Dosage: UNK
  7. MOCLOBEMIDE [Interacting]
     Active Substance: MOCLOBEMIDE
     Dosage: UNK
     Route: 048
  8. ACETANILIDE/ASCORBIC ACID/PHENIRAMINE/PHENYLEPHRINE [Concomitant]
     Dosage: UNK

REACTIONS (8)
  - Completed suicide [Fatal]
  - Chills [Fatal]
  - Drug interaction [Fatal]
  - Agitation [Fatal]
  - Hyperhidrosis [Fatal]
  - Pulmonary congestion [Fatal]
  - Toxicity to various agents [Fatal]
  - Intentional overdose [Fatal]
